FAERS Safety Report 13284797 (Version 1)
Quarter: 2017Q1

REPORT INFORMATION
  Report Type: Spontaneous
  Country: SI (occurrence: SI)
  Receive Date: 20170301
  Receipt Date: 20170301
  Transmission Date: 20170428
  Serious: Yes (Other)
  Sender: FDA-Public Use
  Company Number: SI-REGENERON PHARMACEUTICALS, INC.-2017-12595

PATIENT

DRUGS (3)
  1. EYLEA [Suspect]
     Active Substance: AFLIBERCEPT
     Dosage: UNK
  2. EYLEA [Suspect]
     Active Substance: AFLIBERCEPT
     Dosage: 1 DF, Q6WK
  3. EYLEA [Suspect]
     Active Substance: AFLIBERCEPT
     Indication: RETINAL VEIN OCCLUSION
     Dosage: 1 APPLICATION EVERY 10 WEEKS

REACTIONS (3)
  - Subretinal fluid [Unknown]
  - Visual acuity reduced [Recovered/Resolved]
  - Macular oedema [Recovered/Resolved]
